FAERS Safety Report 21541801 (Version 2)
Quarter: 2022Q4

REPORT INFORMATION
  Report Type: Spontaneous
  Country: US (occurrence: US)
  Receive Date: 20221102
  Receipt Date: 20221117
  Transmission Date: 20230113
  Serious: No
  Sender: FDA-Public Use
  Company Number: US-PFIZER INC-202201264277

PATIENT
  Age: 78 Year
  Sex: Female

DRUGS (1)
  1. PAXLOVID [Suspect]
     Active Substance: NIRMATRELVIR\RITONAVIR
     Indication: COVID-19 treatment
     Dosage: 3 DF(300MG 100MG TABLET PACK 3TABLETS)
     Dates: start: 20220630, end: 20220704

REACTIONS (3)
  - Glossodynia [Recovering/Resolving]
  - Tongue dry [Unknown]
  - Off label use [Unknown]

NARRATIVE: CASE EVENT DATE: 20220804
